FAERS Safety Report 8708813 (Version 2)
Quarter: 2012Q4

REPORT INFORMATION
  Report Type: Report from Study
  Country: US (occurrence: US)
  Receive Date: 20120806
  Receipt Date: 20121031
  Transmission Date: 20130627
  Serious: Yes (Hospitalization, Other)
  Sender: FDA-Public Use
  Company Number: US-AMGEN-USANI2012047396

PATIENT
  Age: 7 Day
  Sex: Male

DRUGS (25)
  1. ETANERCEPT [Suspect]
     Dosage: 50 mg, qwk
     Route: 064
     Dates: start: 20111111, end: 20120714
  2. ETANERCEPT [Suspect]
     Dosage: 50 mg, qwk
     Route: 064
     Dates: start: 20111111, end: 20120714
  3. PRENATAL VITAMINS [Concomitant]
     Dosage: UNK UNK, qd
     Route: 064
     Dates: start: 20111111, end: 20120714
  4. HCG [Concomitant]
     Dosage: UNK UNK, qd
     Route: 064
     Dates: start: 20111123, end: 20111123
  5. RELAFEN [Concomitant]
     Dosage: 2000 mg, qd
     Route: 064
     Dates: start: 20111111, end: 20111119
  6. VICODIN [Concomitant]
     Dosage: 30 mg, qd
     Route: 064
     Dates: start: 20111111, end: 20120616
  7. PREDNISONE [Concomitant]
     Dosage: 10 mg, qd
     Route: 064
     Dates: start: 20111111, end: 20120714
  8. OMEPRAZOLE [Concomitant]
     Dosage: UNK UNK, qd
     Route: 064
     Dates: start: 20111111, end: 20120714
  9. PROGESTERONE [Concomitant]
     Dosage: 250 mg, qwk
     Route: 064
     Dates: start: 20111117, end: 20120629
  10. CLOMID [Concomitant]
     Dosage: UNK UNK, qd
     Dates: start: 20111115, end: 20111115
  11. ZYRTEC [Concomitant]
     Dosage: 10 mg, qd
     Route: 064
     Dates: start: 20111111, end: 20120714
  12. TYLENOL EXTRA STRENGTH [Concomitant]
     Dosage: 3 g, qd
     Route: 064
     Dates: start: 20111111, end: 20120714
  13. BABY ASPIRIN [Concomitant]
     Dosage: 81 mg, qd
     Route: 064
     Dates: start: 20111111, end: 20111203
  14. FOLIC ACID [Concomitant]
     Dosage: 1 mg, qd
     Route: 064
     Dates: start: 20120319, end: 20120714
  15. Z-PAK [Concomitant]
     Dosage: UNK UNK, qd
     Route: 064
     Dates: start: 20120326, end: 20120329
  16. MACROBID [Concomitant]
     Dosage: UNK UNK, qd
     Route: 064
     Dates: start: 20120326, end: 20120402
  17. AMOXICILLIN [Concomitant]
     Dosage: 1000 mg, qd
     Route: 064
     Dates: start: 20120409, end: 20120413
  18. XOPENEX HFA [Concomitant]
     Dosage: UNK UNK, qd
     Route: 064
     Dates: start: 20120326, end: 20120330
  19. ADVAIR [Concomitant]
     Dosage: UNK UNK, qd
     Dates: start: 20120326, end: 20120330
  20. TUMS [Concomitant]
     Dosage: UNK UNK, qd
     Route: 064
     Dates: start: 20120319, end: 20120714
  21. IRON [Concomitant]
     Dosage: 325 mg, bid
     Route: 064
     Dates: start: 20120603, end: 20120714
  22. FLAGYL [Concomitant]
     Dosage: 500 mg, bid
     Route: 064
     Dates: start: 20120604, end: 20120609
  23. BETAMETHASONE [Concomitant]
     Dosage: UNK
     Route: 064
     Dates: start: 20120603, end: 20120604
  24. MAGNESIUM [Concomitant]
     Dosage: UNK UNK, qd
     Route: 064
     Dates: start: 20120603, end: 20120603
  25. TERBUTALINE [Concomitant]
     Dosage: UNK UNK, qd
     Route: 064
     Dates: start: 20120603, end: 20120620

REACTIONS (10)
  - Meningitis neonatal [Unknown]
  - Meningitis enteroviral [Unknown]
  - Meningitis aseptic [Unknown]
  - Respiratory distress [Unknown]
  - Infantile apnoeic attack [Unknown]
  - Cyanosis neonatal [Unknown]
  - Thrombocytopenia [Unknown]
  - Atrial septal defect [Unknown]
  - Pulmonary valve stenosis [Unknown]
  - Aortic valve incompetence [Unknown]
